FAERS Safety Report 5963851-8 (Version None)
Quarter: 2008Q4

REPORT INFORMATION
  Report Type: 
  Country: None (occurrence: None)
  Receive Date: 20081121
  Receipt Date: 20081121
  Transmission Date: 20090506
  Serious: Yes (Hospitalization)
  Sender: FDA-Public Use
  Company Number: None

PATIENT
  Age: 45 Year
  Sex: Female

DRUGS (1)
  1. DICYCLOMINE [Suspect]
     Indication: ABDOMINAL PAIN
     Dosage: 20 X1 IV BOLUS
     Route: 040
     Dates: start: 20081119, end: 20081119

REACTIONS (3)
  - DYSARTHRIA [None]
  - INCORRECT ROUTE OF DRUG ADMINISTRATION [None]
  - MEDICATION ERROR [None]
